FAERS Safety Report 21867415 (Version 1)
Quarter: 2023Q1

REPORT INFORMATION
  Report Type: Report from Study
  Country: CA (occurrence: CA)
  Receive Date: 20230116
  Receipt Date: 20230116
  Transmission Date: 20230418
  Serious: Yes (Other)
  Sender: FDA-Public Use
  Company Number: CA-BIOVITRUM-2023CA00660

PATIENT
  Age: 34 Year
  Sex: Male

DRUGS (1)
  1. KINERET [Suspect]
     Active Substance: ANAKINRA
     Indication: Pericarditis
     Dates: start: 20211029

REACTIONS (2)
  - Pericarditis [Unknown]
  - Off label use [Unknown]

NARRATIVE: CASE EVENT DATE: 20211029
